FAERS Safety Report 6669614-2 (Version None)
Quarter: 2010Q2

REPORT INFORMATION
  Report Type: 
  Country: None (occurrence: None)
  Receive Date: 20100406
  Receipt Date: 20100323
  Transmission Date: 20101027
  Serious: Yes (Hospitalization)
  Sender: FDA-Public Use
  Company Number: US-MYLANLABS-2010S1004812

PATIENT
  Age: 46 Year
  Sex: Female

DRUGS (5)
  1. ONDANSETRON [Suspect]
     Indication: NAUSEA
     Route: 041
     Dates: start: 20060101, end: 20060101
  2. DIOVAN HCT [Concomitant]
     Indication: HYPERTENSION
     Route: 065
  3. PANTOPRAZOLE [Concomitant]
     Indication: GASTRITIS
     Dates: start: 20060101
  4. MIDAZOLAM HCL [Concomitant]
     Indication: SEDATION
     Route: 065
     Dates: start: 20060101, end: 20060101
  5. FENTANYL-100 [Concomitant]
     Indication: SEDATION
     Route: 065
     Dates: start: 20060101, end: 20060101

REACTIONS (1)
  - ATRIOVENTRICULAR BLOCK SECOND DEGREE [None]
